FAERS Safety Report 8006950-1 (Version None)
Quarter: 2011Q4

REPORT INFORMATION
  Report Type: 
  Country: None (occurrence: None)
  Receive Date: 20111227
  Receipt Date: 20111219
  Transmission Date: 20120403
  Serious: Yes (Hospitalization)
  Sender: FDA-Public Use
  Company Number: US-BAYER-2011-123071

PATIENT
  Age: 34 Year
  Sex: Female
  Weight: 63.3 kg

DRUGS (7)
  1. PERCOCET [Concomitant]
     Indication: PAIN
     Dosage: 1-2 EVERY 4-12 HOURS, PRN
  2. PHENERGAN [Concomitant]
     Indication: NAUSEA
     Dosage: 25 MG, BEFORE EACH MEAL
     Route: 048
  3. YAZ [Suspect]
     Indication: CONTRACEPTION
     Dosage: UNK
     Dates: start: 20070101
  4. VICODIN [Concomitant]
     Indication: PAIN
     Dosage: 5-500 MG DAILY
     Route: 048
  5. BENADRYL [Concomitant]
     Indication: PRURITUS
     Dosage: 25 MG, PRN
     Route: 048
  6. NORDETTE-21 [Concomitant]
     Indication: CONTRACEPTION
     Dosage: UNK
     Dates: start: 20070101
  7. YASMIN [Suspect]
     Indication: CONTRACEPTION
     Dosage: UNK
     Dates: start: 20070101

REACTIONS (3)
  - MENTAL DISORDER [None]
  - CHOLECYSTITIS CHRONIC [None]
  - APPENDICITIS [None]
